FAERS Safety Report 20363599 (Version 1)
Quarter: 2022Q1

REPORT INFORMATION
  Report Type: Spontaneous
  Country: US (occurrence: US)
  Receive Date: 20220121
  Receipt Date: 20220121
  Transmission Date: 20220423
  Serious: No
  Sender: FDA-Public Use
  Company Number: US-HORIZON THERAPEUTICS-HZN-2021-008730

PATIENT
  Sex: Female

DRUGS (1)
  1. PENNSAID [Suspect]
     Active Substance: DICLOFENAC SODIUM
     Indication: Antiinflammatory therapy
     Dosage: 2 DOSAGE FORM (APPLIED TWO PUMPS TOPICAL TO AFFECTED AREAS TWICE A DAY), BID
     Route: 061
     Dates: start: 20211020

REACTIONS (2)
  - Product dose omission issue [Unknown]
  - Device malfunction [Unknown]
